FAERS Safety Report 21749463 (Version 2)
Quarter: 2022Q4

REPORT INFORMATION
  Report Type: Report from Study
  Country: US (occurrence: US)
  Receive Date: 20221219
  Receipt Date: 20221220
  Transmission Date: 20230112
  Serious: Yes (Other)
  Sender: FDA-Public Use
  Company Number: US-ABBVIE-4241777

PATIENT
  Age: 66 Year
  Sex: Female

DRUGS (2)
  1. SKYRIZI [Suspect]
     Active Substance: RISANKIZUMAB-RZAA
     Indication: Psoriasis
     Dosage: FORM STRENGTH 40 MG
     Route: 058
  2. SKYRIZI [Suspect]
     Active Substance: RISANKIZUMAB-RZAA
     Route: 058

REACTIONS (8)
  - Back injury [Unknown]
  - COVID-19 [Unknown]
  - Confusional state [Unknown]
  - Influenza [Recovered/Resolved]
  - Sinusitis [Unknown]
  - Unevaluable event [Unknown]
  - Sneezing [Unknown]
  - Arthralgia [Unknown]

NARRATIVE: CASE EVENT DATE: 20211109
